FAERS Safety Report 6460476-5 (Version None)
Quarter: 2009Q4

REPORT INFORMATION
  Report Type: 
  Country: None (occurrence: None)
  Receive Date: 20091130
  Receipt Date: 20091118
  Transmission Date: 20100525
  Serious: Yes (Other)
  Sender: FDA-Public Use
  Company Number: PL-ROCHE-669948

PATIENT
  Sex: Female
  Weight: 65 kg

DRUGS (1)
  1. TAMIFLU [Suspect]
     Indication: EXPOSURE TO COMMUNICABLE DISEASE
     Route: 048
     Dates: start: 20091116, end: 20091116

REACTIONS (3)
  - ANXIETY [None]
  - BLOOD PRESSURE INCREASED [None]
  - TACHYCARDIA [None]
